FAERS Safety Report 22173119 (Version 1)
Quarter: 2023Q2

REPORT INFORMATION
  Report Type: Spontaneous
  Country: AU (occurrence: AU)
  Receive Date: 20230404
  Receipt Date: 20230404
  Transmission Date: 20230721
  Serious: Yes (Other)
  Sender: FDA-Public Use
  Company Number: AU-AMGEN-AUSSP2023052994

PATIENT
  Age: 74 Year
  Sex: Male

DRUGS (1)
  1. REPATHA [Suspect]
     Active Substance: EVOLOCUMAB
     Indication: Low density lipoprotein increased
     Dosage: 140 MILLIGRAM (6 MONTHS)
     Route: 065

REACTIONS (8)
  - Pulmonary congestion [Unknown]
  - Dyspnoea [Unknown]
  - Muscular weakness [Unknown]
  - Echocardiogram abnormal [Unknown]
  - Cardiac stress test abnormal [Unknown]
  - Rhinorrhoea [Unknown]
  - Musculoskeletal pain [Not Recovered/Not Resolved]
  - Back pain [Unknown]

NARRATIVE: CASE EVENT DATE: 20230101
